FAERS Safety Report 8453928-X (Version None)
Quarter: 2012Q2

REPORT INFORMATION
  Report Type: 
  Country: None (occurrence: None)
  Receive Date: 20120620
  Receipt Date: 20120607
  Transmission Date: 20120825
  Serious: Yes (Other)
  Sender: FDA-Public Use
  Company Number: IT-MYLANLABS-2012S1011696

PATIENT
  Age: 75 Year
  Sex: Male

DRUGS (3)
  1. FLUOROURACIL [Suspect]
     Indication: PENIS CARCINOMA
     Dosage: 1000 MG/M2 IN CONTINUOUS INFUSION FOR 5 DAYS OF 21 DAYS
     Route: 065
     Dates: start: 20110301
  2. CISPLATIN [Suspect]
     Indication: PENIS CARCINOMA
     Dosage: 100 MG/M2 DAY 1 EVERY 21 DAYS
     Route: 065
     Dates: start: 20110301
  3. PEGFILGRASTIM [Concomitant]
     Indication: PROPHYLAXIS
     Route: 065
     Dates: start: 20110301

REACTIONS (2)
  - RENAL INJURY [None]
  - HYPERCREATININAEMIA [None]
